FAERS Safety Report 19098543 (Version 2)
Quarter: 2021Q2

REPORT INFORMATION
  Report Type: Report from Study
  Country: CO (occurrence: CO)
  Receive Date: 20210406
  Receipt Date: 20210412
  Transmission Date: 20210717
  Serious: Yes (Other)
  Sender: FDA-Public Use
  Company Number: CO-TAKEDA-2020TUS055070

PATIENT
  Age: 2 Year
  Sex: Female
  Weight: 13 kg

DRUGS (3)
  1. VELAGLUCERASE ALFA [Suspect]
     Active Substance: VELAGLUCERASE ALFA
     Indication: GAUCHER^S DISEASE
     Dosage: 400 INTERNATIONAL UNIT
     Route: 065
  2. VELAGLUCERASE ALFA [Suspect]
     Active Substance: VELAGLUCERASE ALFA
     Dosage: 400 INTERNATIONAL UNIT,Q2WEEKS
     Route: 042
     Dates: start: 20191227
  3. VELAGLUCERASE ALFA [Suspect]
     Active Substance: VELAGLUCERASE ALFA
     Dosage: 600 INTERNATIONAL UNIT, Q2WEEKS
     Route: 042
     Dates: start: 20191230

REACTIONS (8)
  - Productive cough [Not Recovered/Not Resolved]
  - Pyrexia [Unknown]
  - Fall [Unknown]
  - Product quality issue [Unknown]
  - Bone fissure [Unknown]
  - Influenza [Unknown]
  - Poor quality product administered [Unknown]
  - Respiratory tract infection [Unknown]

NARRATIVE: CASE EVENT DATE: 20210320
